FAERS Safety Report 9163534 (Version 4)
Quarter: 2013Q3

REPORT INFORMATION
  Report Type: Spontaneous
  Country: CA (occurrence: CA)
  Receive Date: 20130314
  Receipt Date: 20130716
  Transmission Date: 20140515
  Serious: Yes (Other)
  Sender: FDA-Public Use
  Company Number: CA-ROCHE-1200873

PATIENT
  Age: 63 Year
  Sex: Female

DRUGS (8)
  1. XOLAIR [Suspect]
     Indication: ASTHMA
     Route: 058
     Dates: start: 20121016
  2. XOLAIR [Suspect]
     Route: 058
  3. XOLAIR [Suspect]
     Route: 065
     Dates: start: 20130206
  4. XOLAIR [Suspect]
     Route: 065
     Dates: start: 20130704
  5. PULMICORT [Concomitant]
  6. PREDNISONE [Concomitant]
  7. SYMBICORT [Concomitant]
  8. NASONEX [Concomitant]

REACTIONS (13)
  - Carpal tunnel syndrome [Unknown]
  - Polyp [Unknown]
  - Gastroenteritis norovirus [Recovered/Resolved]
  - Arthritis [Unknown]
  - Wheezing [Unknown]
  - Muscle spasms [Unknown]
  - Sinusitis [Unknown]
  - Facial pain [Unknown]
  - Paraesthesia [Unknown]
  - Faecal incontinence [Unknown]
  - Fatigue [Unknown]
  - Rash pruritic [Not Recovered/Not Resolved]
  - Breath sounds abnormal [Unknown]
